FAERS Safety Report 6021236-2 (Version None)
Quarter: 2008Q4

REPORT INFORMATION
  Report Type: 
  Country: None (occurrence: None)
  Receive Date: 20081222
  Receipt Date: 20081217
  Transmission Date: 20090506
  Serious: Yes (Death)
  Sender: FDA-Public Use
  Company Number: CLOF-1000338

PATIENT
  Sex: Female

DRUGS (2)
  1. CLOLAR [Suspect]
     Indication: ACUTE LEUKAEMIA
  2. CYTARABINE [Concomitant]

REACTIONS (1)
  - BLISTER [None]
